FAERS Safety Report 9058530 (Version 1)
Quarter: 2013Q1

REPORT INFORMATION
  Report Type: Spontaneous
  Country: US (occurrence: None)
  Receive Date: 20130118
  Receipt Date: 20130118
  Transmission Date: 20140127
  Serious: Yes (Death)
  Sender: FDA-Public Use
  Company Number: AUR-APL-2013-00155

PATIENT
  Age: 45 Year
  Sex: Male

DRUGS (9)
  1. TOPIRAMATE (TOPIRAMATE) [Suspect]
     Indication: PRODUCT USED FOR UNKNOWN INDICATION
  2. VENLAFAXINE [Suspect]
  3. ALPRAZOLAM (ALPRAZOLAM) [Suspect]
  4. CARBON MONOXIDE [Suspect]
     Route: 048
  5. CARBON MONOXIDE [Suspect]
     Route: 048
  6. ACETAMINOPHEN (PARACETAMOL) [Suspect]
  7. DIPHENHYDRAMINE [Suspect]
  8. MECLIZINE [Suspect]
  9. BUPROPION [Suspect]

REACTIONS (2)
  - Completed suicide [None]
  - Toxicity to various agents [None]
